FAERS Safety Report 7245593-4 (Version None)
Quarter: 2011Q1

REPORT INFORMATION
  Report Type: 
  Country: None (occurrence: None)
  Receive Date: 20110126
  Receipt Date: 20110118
  Transmission Date: 20110831
  Serious: Yes (Other)
  Sender: FDA-Public Use
  Company Number: FR-PFIZER INC-2011011647

PATIENT
  Age: 46 Year
  Sex: Female

DRUGS (9)
  1. HYDROCORTISONE [Concomitant]
     Dosage: 20 MG, 1X/DAY
     Dates: start: 20051005
  2. LIPANTHYL [Concomitant]
     Dosage: 145 MG, 1X/DAY
     Dates: start: 20060331
  3. MINIRIN [Concomitant]
     Dosage: 0.2 MG, 1X/DAY
     Dates: start: 19970120
  4. SOMATROPIN [Suspect]
     Dosage: 0.3 MG
     Dates: start: 20051006
  5. STAGID [Concomitant]
     Dosage: 3 DF, 1X/DAY
     Dates: start: 20101206
  6. ESTREVA [Concomitant]
     Dosage: 2 DF, 1X/DAY
     Dates: start: 20080526
  7. LEVOTHYROX [Concomitant]
     Dosage: 125 UG, 1X/DAY
     Dates: start: 20051005
  8. UTROGESTAN [Concomitant]
     Dosage: 1 DF, 1X/DAY
     Dates: start: 20080526
  9. DILTIAZEM [Concomitant]
     Dosage: 1 DF, 1X/DAY
     Dates: start: 20061124

REACTIONS (1)
  - COLONOSCOPY [None]
